FAERS Safety Report 9016145 (Version 2)
Quarter: 2013Q1

REPORT INFORMATION
  Report Type: Report from Study
  Country: DE (occurrence: DE)
  Receive Date: 20130116
  Receipt Date: 20130123
  Transmission Date: 20140127
  Serious: Yes (Hospitalization)
  Sender: FDA-Public Use
  Company Number: DE-VERTEX PHARMACEUTICALS INC.-2013-000640

PATIENT
  Age: 64 Year
  Sex: Male
  Weight: 61 kg

DRUGS (10)
  1. VX-950 (TELAPREVIR) [Suspect]
     Indication: HEPATITIS C
     Dosage: 2250 MG, QD
     Route: 048
     Dates: start: 20120927, end: 20121209
  2. PEGASYS [Suspect]
     Indication: HEPATITIS C
     Route: 058
     Dates: start: 20121107
  3. PEGASYS [Suspect]
     Dosage: 180 ?G, UNK
     Route: 058
     Dates: start: 20120927, end: 20121025
  4. PEGASYS [Suspect]
     Dosage: 135 ?G, UNK
     Route: 058
     Dates: start: 20121025, end: 20121107
  5. COPEGUS [Suspect]
     Indication: HEPATITIS C
     Dosage: 200 MG, UNK
     Route: 048
     Dates: start: 20121112
  6. COPEGUS [Suspect]
     Dosage: 400 MG, UNK
     Route: 048
     Dates: start: 20121121
  7. COPEGUS [Suspect]
     Dosage: 600 MG, UNK
     Route: 048
     Dates: start: 20120927
  8. COPEGUS [Suspect]
     Dosage: 400 MG, UNK
     Route: 048
     Dates: start: 20121025
  9. RAMIPRIL COMP [Concomitant]
     Indication: PRODUCT USED FOR UNKNOWN INDICATION
     Dosage: 5MG/25MG 1 DOSE PER DAY
     Route: 065
     Dates: start: 20120927
  10. NEURO-RATIOPHARM [Concomitant]
     Indication: PRODUCT USED FOR UNKNOWN INDICATION
     Dosage: 2 DOSES PER DAY
     Route: 065
     Dates: start: 20120927

REACTIONS (1)
  - Microcytic anaemia [Recovered/Resolved]
